FAERS Safety Report 25369912 (Version 1)
Quarter: 2025Q2

REPORT INFORMATION
  Report Type: Spontaneous
  Country: US (occurrence: US)
  Receive Date: 20250528
  Receipt Date: 20250528
  Transmission Date: 20250716
  Serious: No
  Sender: CALLIDITAS THERAPEUTICS AB
  Company Number: US-Calliditas-2025CAL01373

PATIENT
  Age: 62 Year
  Sex: Male

DRUGS (12)
  1. TARPEYO [Suspect]
     Active Substance: BUDESONIDE
     Indication: IgA nephropathy
     Route: 048
     Dates: start: 20241218
  2. ACETAMINOPHEN [Concomitant]
     Active Substance: ACETAMINOPHEN
  3. ASPIRIN [Concomitant]
     Active Substance: ASPIRIN
  4. CULTURELLE [Concomitant]
     Active Substance: LACTOBACILLUS RHAMNOSUS
  5. FERROUS SULFATE [Concomitant]
     Active Substance: FERROUS SULFATE
  6. JANUVIA [Concomitant]
     Active Substance: SITAGLIPTIN PHOSPHATE
  7. LACTASE [Concomitant]
     Active Substance: LACTASE
  8. LASIX [Concomitant]
     Active Substance: FUROSEMIDE
  9. LEVEMIR [Concomitant]
     Active Substance: INSULIN DETEMIR
  10. LEVEMIR [Concomitant]
     Active Substance: INSULIN DETEMIR
  11. NOVOLOG [Concomitant]
     Active Substance: INSULIN ASPART
  12. OZEMPIC [Concomitant]
     Active Substance: SEMAGLUTIDE

REACTIONS (2)
  - Nausea [Unknown]
  - Decreased appetite [Unknown]
